FAERS Safety Report 6257862-5 (Version None)
Quarter: 2009Q3

REPORT INFORMATION
  Report Type: 
  Country: None (occurrence: None)
  Receive Date: 20090707
  Receipt Date: 20071016
  Transmission Date: 20100115
  Serious: Yes (Other)
  Sender: FDA-Public Use
  Company Number: US-ASTRAZENECA-2007UW09600

PATIENT
  Age: 19663 Day
  Sex: Male
  Weight: 98.9 kg

DRUGS (15)
  1. SEROQUEL [Suspect]
     Indication: BIPOLAR DISORDER
     Route: 048
     Dates: start: 20021108, end: 20041230
  2. SEROQUEL [Suspect]
     Indication: DEPRESSION
     Route: 048
     Dates: start: 20021108, end: 20041230
  3. SEROQUEL [Suspect]
     Route: 048
     Dates: start: 20021108
  4. SEROQUEL [Suspect]
     Route: 048
     Dates: start: 20021108
  5. GEODON [Concomitant]
  6. HALDOL [Concomitant]
  7. PAXIL [Concomitant]
     Indication: DEPRESSION
     Dosage: 20-75 MG (FLUCTUATING), EVERY DAY
     Route: 048
     Dates: start: 19980112
  8. LOPID [Concomitant]
     Indication: HYPERCHOLESTEROLAEMIA
     Dates: start: 20010409
  9. GLUCOPHAGE [Concomitant]
     Indication: TYPE 2 DIABETES MELLITUS
     Route: 048
     Dates: start: 19980203
  10. GLIPIZIDE [Concomitant]
     Dosage: 5-10 MG (FLUCTUATING), EVERY DAY
     Dates: start: 20011212
  11. BENEMID [Concomitant]
     Indication: GOUT
     Route: 048
     Dates: start: 19980126
  12. TRENTAL [Concomitant]
     Indication: PROMOTION OF PERIPHERAL CIRCULATION
     Dosage: 200-400 MG (FLUCTUATING) TWICE A DAY
     Route: 048
     Dates: start: 20011212
  13. ALTACE [Concomitant]
     Indication: HYPERTENSION
     Dates: start: 19980130
  14. ASPIRIN [Concomitant]
     Dates: start: 20080411
  15. CLONAZEPAM [Concomitant]
     Dates: start: 20010201

REACTIONS (11)
  - AUTONOMIC NEUROPATHY [None]
  - BLOOD GLUCOSE INCREASED [None]
  - DIABETES MELLITUS INADEQUATE CONTROL [None]
  - DIABETIC KETOACIDOSIS [None]
  - DIABETIC NEPHROPATHY [None]
  - DIABETIC NEUROPATHY [None]
  - DIABETIC RETINOPATHY [None]
  - DIABETIC ULCER [None]
  - IMPAIRED GASTRIC EMPTYING [None]
  - NEUROPATHY PERIPHERAL [None]
  - POLYNEUROPATHY [None]
